FAERS Safety Report 9350691 (Version 1)
Quarter: 2013Q2

REPORT INFORMATION
  Report Type: Report from Study
  Country: CA (occurrence: CA)
  Receive Date: 20130617
  Receipt Date: 20130617
  Transmission Date: 20140414
  Serious: Yes (Hospitalization)
  Sender: FDA-Public Use
  Company Number: PHHY2013CA061106

PATIENT
  Sex: Male

DRUGS (6)
  1. CLOZARIL [Suspect]
     Indication: SCHIZOPHRENIA
     Dosage: UNK
     Route: 048
     Dates: start: 20130326
  2. VALPROIC ACID [Concomitant]
     Dosage: UNK
  3. REMERON [Concomitant]
     Dosage: UNK
  4. IMOVANE [Concomitant]
     Dosage: UNK
  5. SEROQUEL [Concomitant]
     Dosage: UNK
  6. SYNTHROID [Concomitant]
     Dosage: UNK

REACTIONS (4)
  - Cellulitis [Unknown]
  - Oedema peripheral [Recovering/Resolving]
  - Infection [Unknown]
  - Pyrexia [Recovered/Resolved]
